FAERS Safety Report 5065105-3 (Version None)
Quarter: 2006Q3

REPORT INFORMATION
  Report Type: 
  Country: None (occurrence: None)
  Receive Date: 20060727
  Receipt Date: 20060727
  Transmission Date: 20061208
  Serious: Yes (Life-Threatening, Hospitalization)
  Sender: FDA-Public Use
  Company Number: None

PATIENT
  Sex: Female
  Weight: 80.5 kg

DRUGS (8)
  1. FERRLECIT [Suspect]
     Indication: IRON DEFICIENCY ANAEMIA
     Dosage: IV 250 MG/200 ML
     Route: 042
     Dates: start: 20060307
  2. ARANESP [Concomitant]
  3. ZOCOR [Concomitant]
  4. ASPIRIN [Concomitant]
  5. VASOTEC [Concomitant]
  6. LASIX [Concomitant]
  7. SYNTHROID [Concomitant]
  8. LANTUS [Concomitant]

REACTIONS (4)
  - CARDIO-RESPIRATORY ARREST [None]
  - HYPOTENSION [None]
  - NAUSEA [None]
  - VOMITING [None]
